FAERS Safety Report 4464828-4 (Version None)
Quarter: 2004Q4

REPORT INFORMATION
  Report Type: 
  Country: None (occurrence: None)
  Receive Date: 20041004
  Receipt Date: 20031014
  Transmission Date: 20050328
  Serious: Yes (Hospitalization)
  Sender: FDA-Public Use
  Company Number: 352834

PATIENT
  Age: 49 Year
  Sex: Male

DRUGS (3)
  1. COREG [Suspect]
     Indication: CARDIOMYOPATHY
     Dosage: 12.5MG TWICE PER DAY
     Route: 048
     Dates: start: 20030627, end: 20031102
  2. ALTACE [Concomitant]
  3. DIGOXIN [Concomitant]

REACTIONS (2)
  - ANGINA PECTORIS [None]
  - NAUSEA [None]
